FAERS Safety Report 7643293 (Version 2)
Quarter: 2014Q2

REPORT INFORMATION
  Report Type: Spontaneous
  Country: SE (occurrence: SE)
  Receive Date: 20101027
  Receipt Date: 20140403
  Transmission Date: 20141212
  Serious: Yes (Life-Threatening, Hospitalization, Other)
  Sender: FDA-Public Use
  Company Number: SE-BAYER-201043001GPV

PATIENT
  Age: 42 Year
  Sex: Female

DRUGS (7)
  1. CIPROFLOXACIN [Suspect]
     Indication: UROSEPSIS
     Dosage: THREE TIMES IN THREE DIFFERENT DEPATMENTS
  2. CIPROFLOXACIN [Interacting]
     Indication: URINARY TRACT INFECTION
     Route: 048
  3. METHADONE [Interacting]
     Indication: GASTROINTESTINAL PAIN
  4. METHADONE [Interacting]
     Indication: COLONIC PSEUDO-OBSTRUCTION
  5. CO-TRIMOXAZOLE [Concomitant]
  6. VENLAFAXINE [Concomitant]
  7. FLUOXETINE [Concomitant]

REACTIONS (4)
  - Respiratory depression [Recovered/Resolved]
  - Sedation [Recovered/Resolved]
  - Confusional state [Recovered/Resolved]
  - Drug interaction [Recovered/Resolved]
